FAERS Safety Report 15120271 (Version 1)
Quarter: 2018Q3

REPORT INFORMATION
  Report Type: Report from Study
  Country: None (occurrence: NL)
  Receive Date: 20180709
  Receipt Date: 20180709
  Transmission Date: 20181010
  Serious: Yes (Hospitalization)
  Sender: FDA-Public Use
  Company Number: NL-ABBVIE-18S-114-2411246-00

PATIENT
  Sex: Female

DRUGS (1)
  1. DUODOPA [Suspect]
     Active Substance: CARBIDOPA\LEVODOPA
     Indication: PARKINSON^S DISEASE
     Dosage: MD: 13, CD: 5.1, ED: 4
     Route: 050
     Dates: start: 20101117, end: 201807

REACTIONS (2)
  - Freezing phenomenon [Not Recovered/Not Resolved]
  - Obstruction [Not Recovered/Not Resolved]
